APPROVED DRUG PRODUCT: FLUDEOXYGLUCOSE F18
Active Ingredient: FLUDEOXYGLUCOSE F-18
Strength: 20-150mCi/ML
Dosage Form/Route: INJECTABLE;INTRAVENOUS
Application: A203246 | Product #001
Applicant: UNIV TEXAS MD ANDERSON CANCER CENTER
Approved: Jan 13, 2014 | RLD: No | RS: No | Type: RX